FAERS Safety Report 6236612-2 (Version None)
Quarter: 2009Q2

REPORT INFORMATION
  Report Type: 
  Country: None (occurrence: None)
  Receive Date: 20090619
  Receipt Date: 20080508
  Transmission Date: 20091009
  Serious: No
  Sender: FDA-Public Use
  Company Number: US-ASTRAZENECA-2008UW09542

PATIENT
  Age: 88 Year
  Sex: Female

DRUGS (3)
  1. ATACAND [Suspect]
     Indication: HYPERTENSION
     Route: 048
     Dates: start: 20060101
  2. ATACAND HCT [Suspect]
     Indication: HYPERTENSION
     Dosage: 32-12.5 MG
     Route: 048
     Dates: start: 20060101
  3. XANAX [Concomitant]

REACTIONS (1)
  - PROTEIN URINE PRESENT [None]
